FAERS Safety Report 8543827-7 (Version None)
Quarter: 2012Q3

REPORT INFORMATION
  Report Type: 
  Country: None (occurrence: None)
  Receive Date: 20120727
  Receipt Date: 20120716
  Transmission Date: 20120928
  Serious: Yes (Hospitalization)
  Sender: FDA-Public Use
  Company Number: US-BAYER-2012-032557

PATIENT
  Age: 20 Year
  Sex: Female
  Weight: 58.957 kg

DRUGS (3)
  1. YASMIN [Suspect]
     Indication: CONTRACEPTION
     Dosage: UNK
     Dates: start: 20030301, end: 20030601
  2. YASMIN [Suspect]
     Indication: ACNE
  3. IBUPROFEN [Concomitant]
     Indication: CHEST PAIN

REACTIONS (6)
  - ANXIETY [None]
  - INJURY [None]
  - EMOTIONAL DISTRESS [None]
  - PULMONARY EMBOLISM [None]
  - PAIN [None]
  - GENERAL PHYSICAL HEALTH DETERIORATION [None]
